FAERS Safety Report 6434135-9 (Version None)
Quarter: 2009Q4

REPORT INFORMATION
  Report Type: 
  Country: None (occurrence: None)
  Receive Date: 20091110
  Receipt Date: 20090403
  Transmission Date: 20100525
  Serious: No
  Sender: FDA-Public Use
  Company Number: US-ASTRAZENECA-2009SE08357

PATIENT
  Sex: Female

DRUGS (1)
  1. PRILOSEC OTC [Suspect]
     Indication: DYSPEPSIA
     Dosage: 1 TABLET, 1 /DAY FOR 3 DAYS
     Route: 048
     Dates: start: 20090331, end: 20090402

REACTIONS (4)
  - DRUG INEFFECTIVE [None]
  - NAUSEA [None]
  - PANIC ATTACK [None]
  - VOMITING [None]
